FAERS Safety Report 5176565-1 (Version None)
Quarter: 2006Q4

REPORT INFORMATION
  Report Type: 
  Country: None (occurrence: None)
  Receive Date: 20061207
  Receipt Date: 20061127
  Transmission Date: 20070319
  Serious: Yes (Death)
  Sender: FDA-Public Use
  Company Number: 2006029222

PATIENT
  Age: 77 Year
  Sex: Male
  Weight: 55 kg

DRUGS (13)
  1. SUTENT [Suspect]
     Indication: RENAL CELL CARCINOMA STAGE UNSPECIFIED
     Dosage: SEE IMAGE
     Route: 048
     Dates: start: 20051027, end: 20051109
  2. SUTENT [Suspect]
     Indication: RENAL CELL CARCINOMA STAGE UNSPECIFIED
     Dosage: SEE IMAGE
     Route: 048
     Dates: start: 20051208, end: 20060103
  3. SUTENT [Suspect]
     Indication: RENAL CELL CARCINOMA STAGE UNSPECIFIED
     Dosage: SEE IMAGE
     Route: 048
     Dates: start: 20060123, end: 20060208
  4. FLUINDIONE [Concomitant]
  5. OMEPRAZOLE [Concomitant]
  6. GLUCOSE [Concomitant]
  7. NIFEDIPINE [Concomitant]
  8. NEBIVOLOL HCL [Concomitant]
  9. FUROSEMIDE [Concomitant]
  10. POTASSIUM CHLORIDE [Concomitant]
  11. ACETAZOLAMIDE [Concomitant]
  12. GAVISCON [Concomitant]
  13. FLUCONAZOLE [Concomitant]

REACTIONS (2)
  - COMA [None]
  - RESPIRATORY FAILURE [None]
